FAERS Safety Report 6818772-5 (Version None)
Quarter: 2010Q2

REPORT INFORMATION
  Report Type: 
  Country: None (occurrence: None)
  Receive Date: 20100630
  Receipt Date: 20100621
  Transmission Date: 20101027
  Serious: Yes (Hospitalization)
  Sender: FDA-Public Use
  Company Number: 2010SP035200

PATIENT
  Age: 50 Year
  Sex: Male

DRUGS (2)
  1. PEG-INTRON [Suspect]
     Indication: HEPATITIS C
     Dosage: SC
     Route: 058
     Dates: start: 20100326
  2. REBETOL [Suspect]
     Indication: HEPATITIS C
     Dosage: PO
     Route: 048
     Dates: start: 20100326

REACTIONS (7)
  - ANXIETY [None]
  - APPETITE DISORDER [None]
  - CHEST PAIN [None]
  - ELECTROCARDIOGRAM ABNORMAL [None]
  - FATIGUE [None]
  - PANIC ATTACK [None]
  - STRESS [None]
